FAERS Safety Report 5963913-5 (Version None)
Quarter: 2008Q4

REPORT INFORMATION
  Report Type: 
  Country: None (occurrence: None)
  Receive Date: 20081120
  Receipt Date: 20081105
  Transmission Date: 20090506
  Serious: Yes (Other)
  Sender: FDA-Public Use
  Company Number: CIP08002360

PATIENT
  Age: 71 Year
  Sex: Female

DRUGS (1)
  1. ACTONEL [Suspect]
     Dosage: 17.5 MG ONCE WEEKLY ORAL
     Route: 048
     Dates: end: 20081102

REACTIONS (8)
  - ABDOMINAL DISCOMFORT [None]
  - ABDOMINAL PAIN [None]
  - BLOOD PRESSURE DECREASED [None]
  - CONVULSION [None]
  - DIPLOPIA [None]
  - LOSS OF CONSCIOUSNESS [None]
  - NAUSEA [None]
  - SCREAMING [None]
